FAERS Safety Report 4344108-8 (Version None)
Quarter: 2004Q2

REPORT INFORMATION
  Report Type: 
  Country: None (occurrence: None)
  Receive Date: 20040422
  Receipt Date: 20040128
  Transmission Date: 20050107
  Serious: No
  Sender: FDA-Public Use
  Company Number: US-GLAXOSMITHKLINE-A0495329A

PATIENT
  Sex: Male

DRUGS (2)
  1. LEXIVA [Suspect]
     Indication: HIV INFECTION
     Route: 048
  2. UNSPECIFIED DRUG(S) [Concomitant]

REACTIONS (1)
  - HEPATIC ENZYME INCREASED [None]
